FAERS Safety Report 7348372-2 (Version None)
Quarter: 2011Q1

REPORT INFORMATION
  Report Type: 
  Country: None (occurrence: None)
  Receive Date: 20110311
  Receipt Date: 20110304
  Transmission Date: 20110831
  Serious: Yes (Hospitalization)
  Sender: FDA-Public Use
  Company Number: JP-MERCK-1102USA00104

PATIENT
  Age: 80 Year
  Sex: Male
  Weight: 88 kg

DRUGS (10)
  1. PEPCID RPD [Suspect]
     Indication: GASTRIC ULCER
     Route: 048
     Dates: start: 20080109, end: 20110124
  2. AMLODIPINE BESYLATE [Concomitant]
     Indication: HYPERTENSION
     Route: 048
     Dates: start: 20020910
  3. AMOBAN [Concomitant]
     Route: 048
     Dates: start: 20030318
  4. MERISLON [Concomitant]
     Indication: DIZZINESS
     Route: 048
     Dates: start: 20020910
  5. PRORENAL [Concomitant]
     Indication: LUMBAR SPINAL STENOSIS
     Route: 048
     Dates: start: 20060510
  6. OLMETEC [Suspect]
     Indication: HYPERTENSION
     Route: 048
     Dates: start: 20061004, end: 20110124
  7. METHYCOBAL [Concomitant]
     Indication: NEUROPATHY PERIPHERAL
     Route: 048
     Dates: start: 20020910
  8. LULU A NEW TABLETS [Suspect]
     Indication: UPPER RESPIRATORY TRACT INFLAMMATION
     Route: 048
     Dates: start: 20110124, end: 20110125
  9. JUVELA N [Concomitant]
     Indication: INTERMITTENT CLAUDICATION
     Route: 048
     Dates: start: 20020910
  10. MEZOLMIN [Concomitant]
     Indication: HYPERTENSION
     Route: 048
     Dates: start: 20020910

REACTIONS (1)
  - RHABDOMYOLYSIS [None]
